FAERS Safety Report 5129428-1 (Version None)
Quarter: 2006Q4

REPORT INFORMATION
  Report Type: 
  Country: None (occurrence: None)
  Receive Date: 20061012
  Receipt Date: 20060929
  Transmission Date: 20070319
  Serious: Yes (Hospitalization)
  Sender: FDA-Public Use
  Company Number: 163-21880-06100057

PATIENT
  Age: 60 Year
  Sex: Male

DRUGS (1)
  1. REVLIMID [Suspect]
     Indication: MULTIPLE MYELOMA
     Dosage: 1 IN 1 D, ORAL
     Route: 048
     Dates: start: 20060727, end: 20060914

REACTIONS (5)
  - BLOOD POTASSIUM INCREASED [None]
  - CHEST PAIN [None]
  - DYSPNOEA [None]
  - PARANASAL SINUS HYPERSECRETION [None]
  - RENAL FAILURE [None]
